FAERS Safety Report 9527773 (Version 1)
Quarter: 2013Q3

REPORT INFORMATION
  Report Type: Spontaneous
  Country: US (occurrence: US)
  Receive Date: 20130917
  Receipt Date: 20130917
  Transmission Date: 20140515
  Serious: Yes (Other)
  Sender: FDA-Public Use
  Company Number: US-ROCHE-1272692

PATIENT
  Sex: Male

DRUGS (7)
  1. KLONOPIN [Suspect]
     Indication: PRODUCT USED FOR UNKNOWN INDICATION
     Dosage: 7AM, 5PM
     Route: 065
  2. KEPPRA [Suspect]
     Indication: PRODUCT USED FOR UNKNOWN INDICATION
     Dosage: 8AM
     Route: 065
  3. KEPPRA [Suspect]
     Dosage: 6PM
     Route: 065
  4. VIMPAT [Concomitant]
     Dosage: 8AM, 6PM
     Route: 065
  5. TRILEPTAL [Concomitant]
     Route: 065
  6. HUMALOG [Concomitant]
  7. LANTUS [Concomitant]
     Dosage: 20 UNITS 6PM
     Route: 065

REACTIONS (1)
  - Convulsion [Unknown]
